FAERS Safety Report 6850036-6 (Version None)
Quarter: 2010Q3

REPORT INFORMATION
  Report Type: 
  Country: None (occurrence: None)
  Receive Date: 20100716
  Receipt Date: 20071008
  Transmission Date: 20110219
  Serious: No
  Sender: FDA-Public Use
  Company Number: US-PFIZER INC-2007085486

PATIENT
  Sex: Male
  Weight: 61.3 kg

DRUGS (1)
  1. CHANTIX [Suspect]
     Indication: SMOKING CESSATION THERAPY
     Dosage: EVERY DAY
     Route: 048
     Dates: start: 20070101, end: 20070101

REACTIONS (3)
  - ABNORMAL DREAMS [None]
  - FATIGUE [None]
  - NAUSEA [None]
